FAERS Safety Report 12624272 (Version 2)
Quarter: 2016Q3

REPORT INFORMATION
  Report Type: Spontaneous
  Country: IT (occurrence: IT)
  Receive Date: 20160805
  Receipt Date: 20160808
  Transmission Date: 20161109
  Serious: Yes (Hospitalization)
  Sender: FDA-Public Use
  Company Number: IT-009507513-1608ITA001615

PATIENT
  Age: 66 Year
  Sex: Male

DRUGS (2)
  1. RIZALIV 5 MG COMPRESSE [Suspect]
     Active Substance: RIZATRIPTAN BENZOATE
     Indication: HEADACHE
     Dosage: 36 DOSE (UNIT), MONTHLY
     Route: 048
     Dates: start: 20160701, end: 20160725
  2. DIFMETRE [Suspect]
     Active Substance: CAFFEINE\INDOMETHACIN\PROCHLORPERAZINE MALEATE
     Indication: HEADACHE
     Dosage: 36 DOSE (UNIT), MONTHLY
     Route: 048
     Dates: start: 20160701, end: 20160725

REACTIONS (5)
  - Anxiety [Recovering/Resolving]
  - Hypertension [Recovering/Resolving]
  - Drug abuse [Recovering/Resolving]
  - Headache [Recovering/Resolving]
  - Blood creatine phosphokinase increased [Recovering/Resolving]

NARRATIVE: CASE EVENT DATE: 20160725
